FAERS Safety Report 10938960 (Version 2)
Quarter: 2015Q2

REPORT INFORMATION
  Report Type: Spontaneous
  Country: US (occurrence: US)
  Receive Date: 20150321
  Receipt Date: 20150525
  Transmission Date: 20150821
  Serious: No
  Sender: FDA-Public Use
  Company Number: US-JNJFOC-20141102565

PATIENT
  Sex: Female
  Weight: 104 kg

DRUGS (2)
  1. TOPAMAX [Suspect]
     Active Substance: TOPIRAMATE
     Indication: PRODUCT USED FOR UNKNOWN INDICATION
     Route: 048
  2. ZOLOFT [Suspect]
     Active Substance: SERTRALINE HYDROCHLORIDE
     Indication: BIPOLAR DISORDER
     Route: 065
     Dates: start: 2005

REACTIONS (5)
  - Diverticulum [Not Recovered/Not Resolved]
  - Lung disorder [Unknown]
  - Abdominal discomfort [Unknown]
  - Oedema peripheral [Not Recovered/Not Resolved]
  - Total lung capacity decreased [Not Recovered/Not Resolved]
